FAERS Safety Report 9260586 (Version 2)
Quarter: 2013Q2

REPORT INFORMATION
  Report Type: Spontaneous
  Country: US (occurrence: US)
  Receive Date: 20130429
  Receipt Date: 20130620
  Transmission Date: 20140414
  Serious: Yes (Hospitalization)
  Sender: FDA-Public Use
  Company Number: US-JNJFOC-20130411496

PATIENT
  Age: 51 Year
  Sex: Male

DRUGS (6)
  1. STELARA [Suspect]
     Indication: PSORIASIS
     Route: 058
     Dates: start: 20130301
  2. CYCLOSPORINE A [Suspect]
     Indication: PSORIASIS
     Route: 048
     Dates: start: 20130219
  3. ETHYL ALCOHOL [Suspect]
     Indication: DRUG ABUSE
     Route: 065
  4. CANNABIS [Suspect]
     Indication: DRUG ABUSE
     Route: 065
  5. CLINDAMYCIN [Concomitant]
     Indication: PRODUCT USED FOR UNKNOWN INDICATION
     Route: 065
  6. XARELTO [Concomitant]
     Indication: DEEP VEIN THROMBOSIS
     Route: 065

REACTIONS (1)
  - Posterior reversible encephalopathy syndrome [Recovered/Resolved]
